FAERS Safety Report 15355319 (Version 1)
Quarter: 2018Q3

REPORT INFORMATION
  Report Type: Spontaneous
  Country: US (occurrence: US)
  Receive Date: 20180830
  Receipt Date: 20180830
  Transmission Date: 20181010
  Serious: Yes (Disabling)
  Sender: FDA-Public Use
  Company Number: None

PATIENT
  Age: 56 Year
  Sex: Female
  Weight: 55.35 kg

DRUGS (5)
  1. MULTIVITAMIN [Concomitant]
     Active Substance: VITAMINS
  2. RANITIDINE. [Concomitant]
     Active Substance: RANITIDINE
  3. VITAMIN D [Concomitant]
     Active Substance: CHOLECALCIFEROL
  4. MOBIC [Suspect]
     Active Substance: MELOXICAM
     Indication: OSTEOARTHRITIS
     Dosage: ?          QUANTITY:1 TABLET(S);?
     Route: 048
     Dates: start: 20180523, end: 20180709
  5. DICLOFENAC [Concomitant]
     Active Substance: DICLOFENAC

REACTIONS (3)
  - Weight increased [None]
  - Dyspnoea [None]
  - Alopecia [None]

NARRATIVE: CASE EVENT DATE: 20180709
